FAERS Safety Report 7687719-4 (Version None)
Quarter: 2011Q3

REPORT INFORMATION
  Report Type: 
  Country: None (occurrence: None)
  Receive Date: 20110817
  Receipt Date: 20110722
  Transmission Date: 20111222
  Serious: No
  Sender: FDA-Public Use
  Company Number: US-B.I. PHARMACEUTICALS,INC./RIDGEFIELD-2011-BP-16693BP

PATIENT
  Sex: Female

DRUGS (5)
  1. PRADAXA [Suspect]
     Indication: ATRIAL FIBRILLATION
     Dosage: 300 MG
     Route: 048
     Dates: start: 20110617
  2. VIT D [Concomitant]
     Indication: SUPPLEMENTATION THERAPY
  3. MULTI-VITAMIN [Concomitant]
     Indication: VITAMIN SUPPLEMENTATION
  4. SOTALOL HCL [Concomitant]
     Indication: ATRIAL FIBRILLATION
     Dates: start: 20060101
  5. SHAKLEE STEROLF [Concomitant]
     Indication: BLOOD CHOLESTEROL INCREASED
     Dates: start: 20110501

REACTIONS (1)
  - DIZZINESS [None]
